FAERS Safety Report 20936768 (Version 1)
Quarter: 2022Q2

REPORT INFORMATION
  Report Type: Spontaneous
  Country: FR (occurrence: FR)
  Receive Date: 20220609
  Receipt Date: 20220609
  Transmission Date: 20220721
  Serious: Yes (Hospitalization)
  Sender: FDA-Public Use
  Company Number: FR-AFSSAPS-RE20220736

PATIENT
  Age: 88 Year
  Sex: Male
  Weight: 60 kg

DRUGS (11)
  1. LERCANIDIPINE [Suspect]
     Active Substance: LERCANIDIPINE
     Indication: Hypertension
     Dosage: 10 MILLIGRAM, DAILY
     Route: 048
     Dates: end: 20220509
  2. PAROXETINE [Suspect]
     Active Substance: PAROXETINE
     Indication: Mental disorder
     Dosage: 20 MILLIGRAM, DAILY
     Route: 048
  3. FUROSEMIDE [Suspect]
     Active Substance: FUROSEMIDE
     Indication: Hypertension
     Dosage: 40 MILLIGRAM, DAILY
     Route: 048
  4. ALPRAZOLAM [Suspect]
     Active Substance: ALPRAZOLAM
     Indication: Anxiety
     Dosage: 0.5 MILLIGRAM, DAILY
     Route: 048
     Dates: end: 20220504
  5. NEFOPAM HYDROCHLORIDE [Suspect]
     Active Substance: NEFOPAM HYDROCHLORIDE
     Indication: Pain
     Dosage: IF NECESSARY ()
     Route: 051
     Dates: end: 20220501
  6. BEPANTHEN 5 %, pommade [Concomitant]
     Indication: Product used for unknown indication
     Dosage: UNK
     Route: 065
  7. TRANSIPEG 5,9 g, poudre pour solution buvable en sachet [Concomitant]
     Indication: Product used for unknown indication
     Dosage: UNK
     Route: 065
  8. KARDEGIC [Concomitant]
     Active Substance: ASPIRIN DL-LYSINE
     Indication: Product used for unknown indication
     Dosage: UNK
     Route: 065
  9. AVODART [Concomitant]
     Active Substance: DUTASTERIDE
     Indication: Product used for unknown indication
     Dosage: UNK
     Route: 065
  10. ACETAMINOPHEN [Concomitant]
     Active Substance: ACETAMINOPHEN
     Indication: Product used for unknown indication
     Dosage: UNK
     Route: 065
  11. ELIQUIS [Concomitant]
     Active Substance: APIXABAN
     Indication: Product used for unknown indication
     Dosage: UNK
     Route: 065

REACTIONS (1)
  - Fall [Not Recovered/Not Resolved]

NARRATIVE: CASE EVENT DATE: 20220501
